FAERS Safety Report 13017727 (Version 2)
Quarter: 2017Q1

REPORT INFORMATION
  Report Type: Spontaneous
  Country: US (occurrence: US)
  Receive Date: 20161212
  Receipt Date: 20170111
  Transmission Date: 20170428
  Serious: No
  Sender: FDA-Public Use
  Company Number: US-PFIZER INC-2016564752

PATIENT
  Age: 42 Year
  Sex: Female
  Weight: 110.2 kg

DRUGS (8)
  1. PROZAC [Concomitant]
     Active Substance: FLUOXETINE HYDROCHLORIDE
     Dosage: 60 MG, DAILY
     Dates: start: 200306
  2. TIZANIDINE HCL [Concomitant]
     Active Substance: TIZANIDINE HYDROCHLORIDE
     Dosage: 2 MG, AS NEEDED [1 TABLET(S) BY MOUTH Q 8HR PRN]
  3. LYRICA [Suspect]
     Active Substance: PREGABALIN
     Dosage: 225 MG, DAILY
     Route: 048
  4. PROZAC [Concomitant]
     Active Substance: FLUOXETINE HYDROCHLORIDE
     Indication: DEPRESSION
     Dosage: 60 MG, 1X/DAY [3 TABS QAM]
  5. LYRICA [Suspect]
     Active Substance: PREGABALIN
     Indication: FIBROMYALGIA
     Dosage: 300 MG, 1X/DAY
     Route: 048
     Dates: start: 201602
  6. LYRICA [Suspect]
     Active Substance: PREGABALIN
     Dosage: 300 MG, DAILY
     Dates: start: 201604
  7. XANAX [Concomitant]
     Active Substance: ALPRAZOLAM
     Indication: ANXIETY
     Dosage: 0.5 MG, AS NEEDED [PO BID PRN] [30MCG/0.15 MG TABLET TAKE 1 TABLET(S) BY MOUTH DAILY AS DIRECTED]
     Route: 048
     Dates: start: 201609
  8. FLUTICASONE PROPIONATE. [Concomitant]
     Active Substance: FLUTICASONE PROPIONATE
     Dosage: UNK UNK, DAILY [50MCG/1 ACTUATION NASAL SPRAY(S) IN EACH NOSTRIL]
     Route: 045

REACTIONS (2)
  - Headache [Recovered/Resolved]
  - Nausea [Unknown]
